FAERS Safety Report 23076844 (Version 1)
Quarter: 2023Q4

REPORT INFORMATION
  Report Type: Spontaneous
  Country: EG (occurrence: EG)
  Receive Date: 20231018
  Receipt Date: 20231018
  Transmission Date: 20240110
  Serious: Yes (Other)
  Sender: FDA-Public Use
  Company Number: EG-SANDOZ-SDZ2023EG041216

PATIENT
  Age: 42 Year
  Sex: Male

DRUGS (2)
  1. METHOTREXATE [Suspect]
     Active Substance: METHOTREXATE
     Indication: Spondyloarthropathy
     Route: 065
  2. METHOTREXATE [Suspect]
     Active Substance: METHOTREXATE
     Indication: Enthesopathy

REACTIONS (2)
  - Drug-induced liver injury [Unknown]
  - Product use issue [Unknown]

NARRATIVE: CASE EVENT DATE: 20190701
